FAERS Safety Report 25947432 (Version 2)
Quarter: 2025Q4

REPORT INFORMATION
  Report Type: Report from Study
  Country: US (occurrence: US)
  Receive Date: 20251022
  Receipt Date: 20251113
  Transmission Date: 20260118
  Serious: No
  Sender: MALLINCKRODT
  Company Number: US-MALLINCKRODT-MNK202506473

PATIENT
  Age: 33 Year
  Sex: Female

DRUGS (3)
  1. CORTICOTROPIN [Suspect]
     Active Substance: CORTICOTROPIN
     Indication: Rheumatoid arthritis
     Route: 058
     Dates: start: 20251007
  2. OZEMPIC [Concomitant]
     Active Substance: SEMAGLUTIDE
     Dosage: (2 MG/DOSE) SOPN 8 MG/3ML)
     Dates: start: 20251003
  3. BENLYSTA [Concomitant]
     Active Substance: BELIMUMAB
     Dates: start: 20251003

REACTIONS (1)
  - Drug hypersensitivity [Unknown]

NARRATIVE: CASE EVENT DATE: 20251007
